FAERS Safety Report 7248147-9 (Version None)
Quarter: 2011Q1

REPORT INFORMATION
  Report Type: 
  Country: None (occurrence: None)
  Receive Date: 20110127
  Receipt Date: 20100903
  Transmission Date: 20110831
  Serious: Yes (Hospitalization, Other)
  Sender: FDA-Public Use
  Company Number: US-BAYER-201011735NA

PATIENT
  Sex: Female
  Weight: 68 kg

DRUGS (21)
  1. YAZ [Suspect]
     Indication: ORAL CONTRACEPTION
     Route: 048
     Dates: start: 20060101, end: 20090615
  2. AMOXICILLIN [Concomitant]
  3. CLINDAMYCIN [Concomitant]
  4. MUPIROCIN [Concomitant]
  5. MUPIROCIN [Concomitant]
  6. UNCODEABLE ^UNCLASSIFIABLE^ [Concomitant]
  7. OCELLA [Suspect]
     Indication: ORAL CONTRACEPTION
     Route: 048
     Dates: start: 20080101, end: 20090615
  8. Z-MAX [PHENTOLAMINE MESILATE] [Concomitant]
  9. NAPROXEN [Concomitant]
  10. CEFADROXIL [Concomitant]
  11. UNCODEABLE ^UNCLASSIFIABLE^ [Concomitant]
  12. MELOXICAM [Concomitant]
  13. MIDRIN [Concomitant]
  14. MUPIROCIN [Concomitant]
  15. DOXYCYCLINE [Concomitant]
  16. NEOMYCIN [Concomitant]
  17. ADVIL LIQUI-GELS [Concomitant]
  18. MOTRIN [Concomitant]
  19. UNCODEABLE ^UNCLASSIFIABLE^ [Concomitant]
  20. YASMIN [Suspect]
     Indication: ORAL CONTRACEPTION
     Route: 048
     Dates: start: 20030101, end: 20090615
  21. AZITHROMYCIN [Concomitant]

REACTIONS (7)
  - ABDOMINAL PAIN UPPER [None]
  - ADENOMA BENIGN [None]
  - CHOLELITHIASIS [None]
  - VOMITING [None]
  - ABDOMINAL PAIN [None]
  - CHOLECYSTITIS CHRONIC [None]
  - NAUSEA [None]
